FAERS Safety Report 12404316 (Version 1)
Quarter: 2016Q2

REPORT INFORMATION
  Report Type: Spontaneous
  Country: US (occurrence: US)
  Receive Date: 20160525
  Receipt Date: 20160525
  Transmission Date: 20160815
  Serious: No
  Sender: FDA-Public Use
  Company Number: US-TARO-2016TAR00093

PATIENT
  Age: 9 Month
  Sex: Female

DRUGS (1)
  1. FEVERALL CHILDRENS [Suspect]
     Active Substance: ACETAMINOPHEN
     Dosage: 1 SUPPOSITORY, ONCE
     Route: 054
     Dates: start: 20160128

REACTIONS (3)
  - Vomiting [Recovered/Resolved]
  - Diarrhoea [Recovered/Resolved]
  - Prescribed overdose [Recovered/Resolved]

NARRATIVE: CASE EVENT DATE: 20160128
